FAERS Safety Report 6862906-3 (Version None)
Quarter: 2010Q3

REPORT INFORMATION
  Report Type: 
  Country: None (occurrence: None)
  Receive Date: 20100721
  Receipt Date: 20100715
  Transmission Date: 20110219
  Serious: Yes (Hospitalization)
  Sender: FDA-Public Use
  Company Number: B0665513A

PATIENT
  Sex: Female

DRUGS (5)
  1. DEROXAT [Suspect]
     Indication: DEPRESSION
     Route: 048
  2. SECTRAL [Suspect]
     Route: 048
     Dates: start: 20091203
  3. MEMANTINE [Suspect]
     Route: 048
  4. REMINYL [Suspect]
     Route: 048
  5. EQUANIL [Suspect]
     Indication: ANXIETY
     Route: 048

REACTIONS (6)
  - BLOOD POTASSIUM INCREASED [None]
  - BRADYCARDIA [None]
  - LOSS OF CONSCIOUSNESS [None]
  - MALAISE [None]
  - RENAL FAILURE [None]
  - TONIC CLONIC MOVEMENTS [None]
